FAERS Safety Report 8166374-3 (Version None)
Quarter: 2012Q1

REPORT INFORMATION
  Report Type: 
  Country: None (occurrence: None)
  Receive Date: 20120227
  Receipt Date: 20110624
  Transmission Date: 20120608
  Serious: Yes (Other)
  Sender: FDA-Public Use
  Company Number: US-MYLANLABS-2011S1013293

PATIENT
  Sex: Female

DRUGS (2)
  1. ACCUTANE [Suspect]
     Indication: ACNE
     Dates: start: 20021101, end: 20030201
  2. AMNESTEEM [Suspect]
     Indication: ACNE
     Dates: start: 20030301, end: 20030401

REACTIONS (1)
  - COLITIS ULCERATIVE [None]
